FAERS Safety Report 18612139 (Version 1)
Quarter: 2020Q4

REPORT INFORMATION
  Report Type: Spontaneous
  Country: US (occurrence: US)
  Receive Date: 20201210
  Receipt Date: 20201210
  Transmission Date: 20210114
  Serious: Yes (Hospitalization)
  Sender: FDA-Public Use
  Company Number: None

PATIENT
  Age: 75 Year
  Sex: Female
  Weight: 92.5 kg

DRUGS (4)
  1. CYCLOPHOSPHAMIDE. [Suspect]
     Active Substance: CYCLOPHOSPHAMIDE
  2. TOCILIZUMAB. [Suspect]
     Active Substance: TOCILIZUMAB
  3. FLUDARABINE [Suspect]
     Active Substance: FLUDARABINE PHOSPHATE
  4. YESCARTA [Suspect]
     Active Substance: AXICABTAGENE CILOLEUCEL

REACTIONS (12)
  - Pyrexia [None]
  - Neurotoxicity [None]
  - Aphasia [None]
  - Memory impairment [None]
  - Fatigue [None]
  - Confusional state [None]
  - Asthenia [None]
  - Communication disorder [None]
  - Encephalopathy [None]
  - Hypotension [None]
  - Cytokine release syndrome [None]
  - Malaise [None]

NARRATIVE: CASE EVENT DATE: 20200727
